FAERS Safety Report 5092955-X (Version None)
Quarter: 2006Q3

REPORT INFORMATION
  Report Type: 
  Country: None (occurrence: None)
  Receive Date: 20060828
  Receipt Date: 20060817
  Transmission Date: 20061208
  Serious: Yes (Hospitalization)
  Sender: FDA-Public Use
  Company Number: DEU-2006-0001986

PATIENT
  Age: 58 Year
  Sex: Female
  Weight: 100 kg

DRUGS (5)
  1. OXYCODONE HCL NALOXONE (OXYCODONE HCL CR TAB40/20MG(NALOXONE HYDROCHLO [Suspect]
     Indication: BACK PAIN
     Dosage: 40 MG, DAILY, ORAL
     Route: 048
     Dates: start: 20050524
  2. FLUSPI (FLUSPIRILENE) [Concomitant]
  3. DECODERMTRI (FLUPREDNIDENE ACETATE, MICONAZOLE NITRATE) [Concomitant]
  4. TETRAZEPAM (TETRAZEPAM) [Concomitant]
  5. IBUPROFEN [Concomitant]

REACTIONS (3)
  - LUMBAR SPINAL STENOSIS [None]
  - SPINAL COLUMN STENOSIS [None]
  - SPONDYLOLISTHESIS [None]
